FAERS Safety Report 10916011 (Version 1)
Quarter: 2015Q1

REPORT INFORMATION
  Report Type: Spontaneous
  Country: US (occurrence: None)
  Receive Date: 20150311
  Receipt Date: 20150311
  Transmission Date: 20150721
  Serious: No
  Sender: FDA-Public Use
  Company Number: None

PATIENT
  Age: 77 Year
  Sex: Male
  Weight: 78.93 kg

DRUGS (12)
  1. IBRUTINIB [Suspect]
     Active Substance: IBRUTINIB
  2. ESOMEPRAZOLE MAGNESIUM (NEXIUM ORAL) [Concomitant]
  3. PROSCAR [Concomitant]
     Active Substance: FINASTERIDE
  4. MULTIVITAMIN [Concomitant]
     Active Substance: VITAMINS
  5. PSYLLIUM SEED/SUCROSE (METAMUCIL ORAL POWDER) [Concomitant]
  6. OMEGA-3 FATTY ACIDS/VITAMIN E (FISH OIL) [Concomitant]
  7. ALBUTEROL HFA (PROVENTIL HFA, VENTOLIN HFA) [Concomitant]
  8. PREDNISONE (DELTASONE) [Concomitant]
  9. AMITRIPTYLINE [Concomitant]
     Active Substance: AMITRIPTYLINE
  10. FLOMAX [Concomitant]
     Active Substance: TAMSULOSIN HYDROCHLORIDE
  11. VALACYCLOVIR (VALTREX) [Concomitant]
  12. ASPIRIN. [Concomitant]
     Active Substance: ASPIRIN

REACTIONS (5)
  - Neuropathy peripheral [None]
  - Pneumonitis [None]
  - Pneumonia viral [None]
  - Lymphadenopathy [None]
  - Pain [None]

NARRATIVE: CASE EVENT DATE: 20150223
